FAERS Safety Report 5730449-6 (Version None)
Quarter: 2008Q2

REPORT INFORMATION
  Report Type: 
  Country: None (occurrence: None)
  Receive Date: 20080507
  Receipt Date: 20080429
  Transmission Date: 20081010
  Serious: Yes (Hospitalization)
  Sender: FDA-Public Use
  Company Number: ES-ASTRAZENECA-2008AC01089

PATIENT
  Age: 48 Year
  Sex: Female

DRUGS (6)
  1. SEROQUEL [Suspect]
     Indication: DEPRESSION
     Route: 048
     Dates: start: 20070825, end: 20070829
  2. DISTRANEURINE [Suspect]
     Indication: DEPRESSION
     Route: 048
     Dates: start: 20070815, end: 20070825
  3. ESCITALOPRAM [Suspect]
     Indication: DEPRESSION
     Route: 048
     Dates: start: 20070825, end: 20070828
  4. TOPAMAX [Suspect]
     Indication: DEPRESSION
     Route: 048
     Dates: start: 20070825, end: 20070828
  5. DORKEN [Suspect]
     Indication: DEPRESSION
     Route: 048
     Dates: start: 20070815, end: 20070825
  6. LEXATIN [Suspect]
     Indication: DEPRESSION
     Route: 048
     Dates: start: 20070825, end: 20070829

REACTIONS (1)
  - HEPATITIS CHOLESTATIC [None]
